FAERS Safety Report 9732489 (Version 1)
Quarter: 2013Q4

REPORT INFORMATION
  Report Type: Spontaneous
  Country: US (occurrence: US)
  Receive Date: 20131204
  Receipt Date: 20131204
  Transmission Date: 20140711
  Serious: Yes (Other)
  Sender: FDA-Public Use
  Company Number: CHPA2013US017757

PATIENT
  Sex: Male

DRUGS (3)
  1. MAALOX ANTACID/ANTIGAS MAX QDTABS ASST [Suspect]
     Indication: FLATULENCE
     Dosage: UNK, UNK
     Route: 048
  2. ZEGERID [Concomitant]
     Indication: GASTROOESOPHAGEAL REFLUX DISEASE
     Dosage: 1 DF, QD
  3. ZANTAC [Concomitant]
     Indication: GASTROOESOPHAGEAL REFLUX DISEASE

REACTIONS (2)
  - Neoplasm malignant [Not Recovered/Not Resolved]
  - Flatulence [Not Recovered/Not Resolved]
